FAERS Safety Report 26085178 (Version 2)
Quarter: 2025Q4

REPORT INFORMATION
  Report Type: Spontaneous
  Country: US (occurrence: US)
  Receive Date: 20251125
  Receipt Date: 20251211
  Transmission Date: 20260117
  Serious: Yes (Life-Threatening, Hospitalization)
  Sender: TEVA
  Company Number: US-TEVA-VS-3394830

PATIENT
  Age: 70 Year
  Sex: Female

DRUGS (1)
  1. TRANEXAMIC ACID [Suspect]
     Active Substance: TRANEXAMIC ACID
     Indication: Prophylaxis
     Dosage: APPROXIMATELY 200MG
     Route: 037

REACTIONS (3)
  - Status epilepticus [Recovered/Resolved]
  - Tachycardia [Recovered/Resolved]
  - Incorrect route of product administration [Unknown]
